FAERS Safety Report 15191743 (Version 1)
Quarter: 2018Q3

REPORT INFORMATION
  Report Type: Spontaneous
  Country: FR (occurrence: FR)
  Receive Date: 20180724
  Receipt Date: 20180724
  Transmission Date: 20181010
  Serious: Yes (Death)
  Sender: FDA-Public Use
  Company Number: FR-MYLANLABS-2018M1053791

PATIENT
  Age: 17 Year
  Sex: Female

DRUGS (1)
  1. IMATINIB [Suspect]
     Active Substance: IMATINIB
     Indication: CHRONIC MYELOID LEUKAEMIA
     Dosage: 340 MG/M2 (260?340 MG/M2), QD? ORAL
     Route: 048

REACTIONS (2)
  - Blast crisis in myelogenous leukaemia [Fatal]
  - Treatment failure [Unknown]
